FAERS Safety Report 16387645 (Version 1)
Quarter: 2019Q2

REPORT INFORMATION
  Report Type: Spontaneous
  Country: NL (occurrence: NL)
  Receive Date: 20190604
  Receipt Date: 20190604
  Transmission Date: 20190711
  Serious: Yes (Hospitalization)
  Sender: FDA-Public Use
  Company Number: NL-TEVA-2019-NL-1056312

PATIENT
  Age: 90 Year
  Sex: Male

DRUGS (1)
  1. BOSENTAN TEVA TABLET FILMOMHULD 62,5 MG (56ST) [Suspect]
     Active Substance: BOSENTAN
     Indication: SKIN ULCER
     Route: 048

REACTIONS (3)
  - Dyspnoea [Unknown]
  - Fluid retention [Unknown]
  - Cardiac failure [Unknown]

NARRATIVE: CASE EVENT DATE: 20190517
